FAERS Safety Report 16050444 (Version 2)
Quarter: 2019Q2

REPORT INFORMATION
  Report Type: Spontaneous
  Country: US (occurrence: US)
  Receive Date: 20190308
  Receipt Date: 20190426
  Transmission Date: 20190711
  Serious: Yes (Other)
  Sender: FDA-Public Use
  Company Number: US-009507513-1903USA001627

PATIENT
  Sex: Female

DRUGS (4)
  1. MEVACOR [Suspect]
     Active Substance: LOVASTATIN
     Indication: BLOOD CHOLESTEROL INCREASED
     Dosage: 20 MG OF 25 MG ONCE A DAY BY MOUTH
     Route: 048
  2. ZOCOR [Suspect]
     Active Substance: SIMVASTATIN
     Indication: BLOOD CHOLESTEROL INCREASED
     Dosage: UNK
     Route: 048
     Dates: end: 2009
  3. ATORVASTATIN [Suspect]
     Active Substance: ATORVASTATIN
     Indication: BLOOD CHOLESTEROL INCREASED
     Dosage: 20 MILLIGRAM ONCE A DAY
     Route: 048
  4. LIPITOR [Suspect]
     Active Substance: ATORVASTATIN CALCIUM
     Indication: BLOOD CHOLESTEROL INCREASED
     Dosage: 20 MILLIGRAM ONCE A DAY
     Route: 048

REACTIONS (6)
  - Cardiac operation [Unknown]
  - Drug ineffective [Unknown]
  - Weight fluctuation [Unknown]
  - Breast cancer [Unknown]
  - Cardiac pacemaker insertion [Unknown]
  - Breast cancer [Unknown]

NARRATIVE: CASE EVENT DATE: 1995
